FAERS Safety Report 5122690-0 (Version None)
Quarter: 2006Q4

REPORT INFORMATION
  Report Type: 
  Country: None (occurrence: None)
  Receive Date: 20061004
  Receipt Date: 20060928
  Transmission Date: 20070319
  Serious: Yes (Hospitalization)
  Sender: FDA-Public Use
  Company Number: 2006-148034-NL

PATIENT
  Age: 40 Year
  Sex: Female

DRUGS (2)
  1. MARVELON [Suspect]
     Indication: HORMONE REPLACEMENT THERAPY
     Dosage: DF ORAL
     Route: 048
     Dates: start: 20060101
  2. MARVELON [Suspect]
     Indication: PREMATURE MENOPAUSE
     Dosage: DF ORAL
     Route: 048
     Dates: start: 20060101

REACTIONS (4)
  - DIZZINESS [None]
  - HEPATIC FUNCTION ABNORMAL [None]
  - PLATELET COUNT DECREASED [None]
  - WHITE BLOOD CELL COUNT INCREASED [None]
